FAERS Safety Report 7392136-0 (Version None)
Quarter: 2011Q2

REPORT INFORMATION
  Report Type: 
  Country: None (occurrence: None)
  Receive Date: 20110404
  Receipt Date: 20101130
  Transmission Date: 20111010
  Serious: Yes (Hospitalization)
  Sender: FDA-Public Use
  Company Number: A0898969A

PATIENT
  Age: 69 Year
  Sex: Male

DRUGS (3)
  1. AVANDARYL [Suspect]
     Route: 048
     Dates: start: 20060606, end: 20070503
  2. AVANDAMET [Suspect]
     Route: 048
     Dates: start: 20050929, end: 20051007
  3. AVANDIA [Suspect]
     Dosage: 4MG TWICE PER DAY
     Route: 048
     Dates: start: 20051007, end: 20060605

REACTIONS (1)
  - ARTERIOSCLEROSIS [None]
